FAERS Safety Report 16015473 (Version 1)
Quarter: 2019Q1

REPORT INFORMATION
  Report Type: Spontaneous
  Country: DE (occurrence: DE)
  Receive Date: 20190228
  Receipt Date: 20190228
  Transmission Date: 20190418
  Serious: Yes (Other)
  Sender: FDA-Public Use
  Company Number: DE-TEVA-2019-DE-1016634

PATIENT
  Age: 51 Year
  Sex: Male

DRUGS (2)
  1. AKRINOR [Concomitant]
     Active Substance: CAFEDRINE HYDROCHLORIDE\THEODRENALINE
     Indication: THYROID OPERATION
  2. CLONIDIN-AMPULLEN (CLONIDINE) [Suspect]
     Active Substance: CLONIDINE
     Indication: THYROID OPERATION
     Dosage: AMPOULES

REACTIONS (3)
  - Cerebral disorder [Not Recovered/Not Resolved]
  - Contraindicated product administered [Unknown]
  - Sinus arrest [Not Recovered/Not Resolved]
